FAERS Safety Report 6792473-4 (Version None)
Quarter: 2010Q2

REPORT INFORMATION
  Report Type: 
  Country: None (occurrence: None)
  Receive Date: 20100624
  Receipt Date: 20100614
  Transmission Date: 20101027
  Serious: Yes (Hospitalization)
  Sender: FDA-Public Use
  Company Number: FR-GENENTECH-303128

PATIENT
  Sex: Female

DRUGS (8)
  1. RITUXIMAB [Suspect]
     Indication: MANTLE CELL LYMPHOMA
     Dosage: UNK
     Route: 042
  2. RITUXIMAB [Suspect]
     Dosage: UNK
     Route: 042
     Dates: start: 20100511
  3. CISPLATIN [Suspect]
     Indication: MANTLE CELL LYMPHOMA
     Dosage: UNK
     Route: 065
  4. CISPLATIN [Suspect]
     Dosage: UNK
     Route: 065
     Dates: start: 20100511
  5. CYTARABINE [Suspect]
     Indication: MANTLE CELL LYMPHOMA
     Dosage: UNK
     Route: 065
  6. CYTARABINE [Suspect]
     Dosage: UNK
     Route: 065
     Dates: start: 20100511
  7. DEXAMETHASONE [Suspect]
     Indication: MANTLE CELL LYMPHOMA
     Dosage: UNK
     Route: 042
  8. DEXAMETHASONE [Suspect]
     Dosage: UNK
     Route: 042
     Dates: start: 20100512, end: 20100514

REACTIONS (3)
  - CONVULSION [None]
  - HYPOCALCAEMIA [None]
  - HYPOKALAEMIA [None]
